FAERS Safety Report 4945493-6 (Version None)
Quarter: 2006Q1

REPORT INFORMATION
  Report Type: 
  Country: None (occurrence: None)
  Receive Date: 20060316
  Receipt Date: 20060206
  Transmission Date: 20060701
  Serious: Yes (Disabling, Other)
  Sender: FDA-Public Use
  Company Number: PHFR2006GB00781

PATIENT
  Age: 70 Year
  Sex: Male

DRUGS (4)
  1. GLEEVEC [Suspect]
     Indication: GASTROINTESTINAL STROMAL TUMOUR
     Dosage: 400MG/DAY
     Route: 048
  2. ATENOLOL [Concomitant]
     Indication: HYPERTENSION
     Dosage: 100MG/DAY
     Route: 048
  3. LANSOPRAZOLE [Concomitant]
     Indication: PROPHYLAXIS
  4. RANITIDINE [Concomitant]
     Dosage: 150 MG, BID

REACTIONS (4)
  - FURUNCLE [None]
  - INFECTION [None]
  - LICHEN PLANUS [None]
  - PRURITUS [None]
